FAERS Safety Report 25275077 (Version 1)
Quarter: 2025Q2

REPORT INFORMATION
  Report Type: Spontaneous
  Country: US (occurrence: US)
  Receive Date: 20250506
  Receipt Date: 20250506
  Transmission Date: 20250717
  Serious: Yes (Other)
  Sender: UCB
  Company Number: US-UCBSA-2025026236

PATIENT
  Age: 38 Year
  Sex: Male

DRUGS (1)
  1. RYSTIGGO [Suspect]
     Active Substance: ROZANOLIXIZUMAB-NOLI
     Indication: Myasthenia gravis

REACTIONS (2)
  - Myasthenia gravis [Unknown]
  - Nausea [Unknown]

NARRATIVE: CASE EVENT DATE: 20250429
